FAERS Safety Report 22105167 (Version 1)
Quarter: 2023Q1

REPORT INFORMATION
  Report Type: Report from Study
  Country: AR (occurrence: AR)
  Receive Date: 20230316
  Receipt Date: 20230316
  Transmission Date: 20230418
  Serious: Yes (Hospitalization)
  Sender: FDA-Public Use
  Company Number: AR-BIOGEN-2023BI01193406

PATIENT
  Age: 1 Year
  Sex: Female

DRUGS (1)
  1. SPINRAZA [Suspect]
     Active Substance: NUSINERSEN
     Indication: Spinal muscular atrophy
     Dosage: THE FIRST INFUSION WAS ON 06 MAR 2023. THE DOSAGE SCHEME IS 1ST DOSE AT DAY 0, 2ND DOSE AT 14 DAY...
     Route: 050
     Dates: start: 20230306

REACTIONS (3)
  - Procedural vomiting [Recovered/Resolved]
  - Insomnia [Recovered/Resolved]
  - Procedural pain [Recovered/Resolved]

NARRATIVE: CASE EVENT DATE: 20230306
